FAERS Safety Report 21619657 (Version 1)
Quarter: 2022Q4

REPORT INFORMATION
  Report Type: Report from Study
  Country: US (occurrence: US)
  Receive Date: 20221121
  Receipt Date: 20221121
  Transmission Date: 20230112
  Serious: No
  Sender: FDA-Public Use
  Company Number: US-ABBVIE-4168481

PATIENT
  Sex: Female

DRUGS (11)
  1. RINVOQ [Suspect]
     Active Substance: UPADACITINIB
     Indication: Rheumatoid arthritis
     Route: 048
  2. PERCOCET TAB [Concomitant]
     Indication: Product used for unknown indication
     Dosage: 5-325MG
  3. LEVOTHYROXIN TAB [Concomitant]
     Indication: Product used for unknown indication
     Dosage: 112MCG
  4. HYDROXYZINE TAB [Concomitant]
     Indication: Product used for unknown indication
     Route: 048
  5. ROPINIROLE H TAB [Concomitant]
     Indication: Product used for unknown indication
     Route: 048
  6. LEVOCETIRIZI TAB [Concomitant]
     Indication: Product used for unknown indication
     Route: 048
  7. TRULICITY SOP [Concomitant]
     Indication: Product used for unknown indication
     Dosage: 1.5MG/0.5ML
  8. LEFLUNOMIDE [Concomitant]
     Active Substance: LEFLUNOMIDE
     Indication: Product used for unknown indication
     Route: 048
  9. PROCARDIA XL TB2 [Concomitant]
     Indication: Product used for unknown indication
     Route: 048
  10. CYCLOBENZAPR TAB [Concomitant]
     Indication: Product used for unknown indication
     Route: 048
  11. PRILOSEC OTC TBE [Concomitant]
     Indication: Product used for unknown indication
     Route: 048

REACTIONS (2)
  - Rheumatoid arthritis [Recovered/Resolved]
  - Drug ineffective [Recovered/Resolved]
